FAERS Safety Report 4553479-9 (Version None)
Quarter: 2005Q1

REPORT INFORMATION
  Report Type: 
  Country: None (occurrence: None)
  Receive Date: 20050112
  Receipt Date: 20041223
  Transmission Date: 20050727
  Serious: Yes (Other)
  Sender: FDA-Public Use
  Company Number: GBS041216279

PATIENT
  Sex: Male
  Weight: 48 kg

DRUGS (2)
  1. STRATTERA [Suspect]
     Indication: ATTENTION DEFICIT/HYPERACTIVITY DISORDER
     Dosage: 50 MG
     Dates: start: 20040901
  2. VALPROATE SODIUM [Concomitant]
     Route: 048

REACTIONS (5)
  - DRUG INTERACTION [None]
  - LYMPHOPENIA [None]
  - NEUTROPENIA [None]
  - THROMBOCYTOPENIA [None]
  - WEIGHT DECREASED [None]
